FAERS Safety Report 6797823-0 (Version None)
Quarter: 2010Q2

REPORT INFORMATION
  Report Type: 
  Country: None (occurrence: None)
  Receive Date: 20100623
  Receipt Date: 20100618
  Transmission Date: 20101027
  Serious: Yes (Hospitalization)
  Sender: FDA-Public Use
  Company Number: SP02281

PATIENT
  Age: 68 Year
  Sex: Female
  Weight: 53.5244 kg

DRUGS (1)
  1. OSMOPREP [Suspect]
     Indication: COLONOSCOPY
     Dosage: ORAL
     Route: 048
     Dates: start: 20081109

REACTIONS (15)
  - ACUTE PHOSPHATE NEPHROPATHY [None]
  - ANAEMIA [None]
  - ARTERIOSCLEROSIS [None]
  - ASTHENIA [None]
  - CHOLELITHIASIS [None]
  - DIABETIC NEPHROPATHY [None]
  - HAEMODIALYSIS [None]
  - INFLUENZA [None]
  - INTERCAPILLARY GLOMERULOSCLEROSIS [None]
  - NEPHRITIS ALLERGIC [None]
  - PANCREATIC ATROPHY [None]
  - PANCREATIC PSEUDOCYST [None]
  - PANCREATITIS CHRONIC [None]
  - RENAL FAILURE [None]
  - TUBULOINTERSTITIAL NEPHRITIS [None]
